FAERS Safety Report 5247263-0 (Version None)
Quarter: 2007Q1

REPORT INFORMATION
  Report Type: 
  Country: None (occurrence: None)
  Receive Date: 20070227
  Receipt Date: 20070213
  Transmission Date: 20070707
  Serious: Yes (Other)
  Sender: FDA-Public Use
  Company Number: PHEH2007US02062

PATIENT
  Age: 21 Year
  Sex: Male

DRUGS (5)
  1. CLOZARIL [Suspect]
     Indication: SCHIZOAFFECTIVE DISORDER
     Dosage: 300MG, UNK
     Dates: end: 20070130
  2. TRILEPTAL [Concomitant]
  3. ONE A DAY [Concomitant]
  4. FLAXSEED OIL [Concomitant]
  5. ASCORBIC ACID [Concomitant]

REACTIONS (6)
  - AGRANULOCYTOSIS [None]
  - DRUG WITHDRAWAL SYNDROME [None]
  - FATIGUE [None]
  - INSOMNIA [None]
  - VOMITING [None]
  - WEIGHT DECREASED [None]
